FAERS Safety Report 21906147 (Version 2)
Quarter: 2024Q4

REPORT INFORMATION
  Report Type: Spontaneous
  Country: CN (occurrence: CN)
  Receive Date: 20230124
  Receipt Date: 20241029
  Transmission Date: 20250115
  Serious: Yes (Other)
  Sender: AMGEN
  Company Number: CN-AMGEN-CHNSP2023009913

PATIENT

DRUGS (6)
  1. PROLIA [Suspect]
     Active Substance: DENOSUMAB
     Indication: Osteoporosis
     Dosage: 60 MILLIGRAM, Q6MO
     Route: 058
  2. PROLIA [Suspect]
     Active Substance: DENOSUMAB
  3. ROMOSOZUMAB [Suspect]
     Active Substance: ROMOSOZUMAB
     Indication: Osteoporosis
     Dosage: 210 MILLIGRAM, QMO
     Route: 058
  4. PREDNISOLONE [Concomitant]
     Active Substance: PREDNISOLONE
     Dosage: UNK
     Route: 048
  5. VITAMIN D [Concomitant]
     Active Substance: VITAMIN D NOS
     Indication: Mineral supplementation
     Dosage: UNK, QD
     Route: 065
  6. CALCIUM [Concomitant]
     Active Substance: CALCIUM
     Indication: Mineral supplementation
     Dosage: UNK, QD
     Route: 065

REACTIONS (27)
  - Spinal fracture [Unknown]
  - Pyelonephritis [Unknown]
  - Acute coronary syndrome [Unknown]
  - Lower respiratory tract infection [Unknown]
  - Pneumonia [Unknown]
  - Cardiac failure [Unknown]
  - Gastrointestinal haemorrhage [Unknown]
  - Hallucination [Unknown]
  - Angina pectoris [Unknown]
  - COVID-19 [Unknown]
  - Gingivitis [Unknown]
  - Hypercalcaemia [Unknown]
  - Injection site swelling [Unknown]
  - Treatment noncompliance [Unknown]
  - Injection site erythema [Unknown]
  - Dizziness [Unknown]
  - Herpes zoster [Unknown]
  - Urinary tract infection [Unknown]
  - Musculoskeletal pain [Unknown]
  - Hypocalcaemia [Unknown]
  - Gastroenteritis [Unknown]
  - Injection site pain [Unknown]
  - Head injury [Unknown]
  - Osteoporosis [Unknown]
  - Muscle spasms [Unknown]
  - Dyspepsia [Unknown]
  - Off label use [Unknown]
